FAERS Safety Report 5495274-2 (Version None)
Quarter: 2007Q4

REPORT INFORMATION
  Report Type: 
  Country: None (occurrence: None)
  Receive Date: 20071024
  Receipt Date: 20071012
  Transmission Date: 20080405
  Serious: Yes (Other)
  Sender: FDA-Public Use
  Company Number: US-PFIZER INC-2007072427

PATIENT
  Sex: Female
  Weight: 70.8 kg

DRUGS (4)
  1. LYRICA [Suspect]
     Indication: FIBROMYALGIA
     Route: 048
     Dates: start: 20070701, end: 20070801
  2. KEPPRA [Suspect]
     Indication: FIBROMYALGIA
     Dates: start: 20070801, end: 20070918
  3. ZOCOR [Concomitant]
  4. AMBIEN [Concomitant]

REACTIONS (14)
  - ALOPECIA [None]
  - ASTHENIA [None]
  - CONVULSION [None]
  - DEPRESSION [None]
  - DIZZINESS [None]
  - FATIGUE [None]
  - FORMICATION [None]
  - HEADACHE [None]
  - HOT FLUSH [None]
  - MULTIPLE SCLEROSIS [None]
  - PRURITUS [None]
  - SUICIDAL IDEATION [None]
  - UTERINE LEIOMYOMA [None]
  - VULVOVAGINAL BURNING SENSATION [None]
